FAERS Safety Report 9674787 (Version 1)
Quarter: 2013Q4

REPORT INFORMATION
  Report Type: Spontaneous
  Country: US (occurrence: US)
  Receive Date: 20131107
  Receipt Date: 20131107
  Transmission Date: 20140711
  Serious: Yes (Hospitalization)
  Sender: FDA-Public Use
  Company Number: US-BAYER-2013-135134

PATIENT
  Age: 44 Year
  Sex: Female

DRUGS (2)
  1. YASMIN [Suspect]
     Dosage: UNK
  2. DOXEPIN [Concomitant]
     Dosage: UNK UNK, PRN

REACTIONS (3)
  - Pulmonary embolism [None]
  - Chest pain [None]
  - Blister [None]
